FAERS Safety Report 25533624 (Version 1)
Quarter: 2025Q3

REPORT INFORMATION
  Report Type: Spontaneous
  Country: NZ (occurrence: NZ)
  Receive Date: 20250709
  Receipt Date: 20250709
  Transmission Date: 20251020
  Serious: Yes (Death)
  Sender: MYLAN
  Company Number: NZ-MYLANLABS-2025M1057610

PATIENT
  Sex: Male

DRUGS (4)
  1. CLOZARIL [Suspect]
     Active Substance: CLOZAPINE
     Indication: Schizophrenia
     Dates: start: 20040805, end: 20250706
  2. CLOZARIL [Suspect]
     Active Substance: CLOZAPINE
     Route: 048
     Dates: start: 20040805, end: 20250706
  3. CLOZARIL [Suspect]
     Active Substance: CLOZAPINE
     Route: 048
     Dates: start: 20040805, end: 20250706
  4. CLOZARIL [Suspect]
     Active Substance: CLOZAPINE
     Dates: start: 20040805, end: 20250706

REACTIONS (2)
  - Pneumonia necrotising [Fatal]
  - Chronic obstructive pulmonary disease [Fatal]
